FAERS Safety Report 8179943-1 (Version None)
Quarter: 2012Q1

REPORT INFORMATION
  Report Type: 
  Country: None (occurrence: None)
  Receive Date: 20120302
  Receipt Date: 20120229
  Transmission Date: 20120608
  Serious: Yes (Hospitalization, Other)
  Sender: FDA-Public Use
  Company Number: US-ABBOTT-11P-163-0700491-00

PATIENT
  Sex: Female
  Weight: 68.1 kg

DRUGS (8)
  1. HYDROCHLOROTHIAZIDE [Concomitant]
     Indication: HYPERTENSION
  2. UNKNOWN VITAMINS [Concomitant]
     Indication: VITAMIN SUPPLEMENTATION
  3. HUMIRA [Suspect]
     Indication: PSORIASIS
     Dates: start: 20090501, end: 20090907
  4. BENAZAPRIL HCL [Concomitant]
     Indication: HYPERTENSION
  5. HUMIRA [Suspect]
     Dates: end: 20091013
  6. UNKNOWN INHALER [Concomitant]
     Indication: ASTHMA
  7. SIMVASTATIN [Concomitant]
     Indication: BLOOD CHOLESTEROL INCREASED
  8. HUMIRA [Suspect]

REACTIONS (7)
  - CONFUSIONAL STATE [None]
  - NECK PAIN [None]
  - HEADACHE [None]
  - POST-TRAUMATIC NECK SYNDROME [None]
  - ANEURYSM [None]
  - SPEECH DISORDER [None]
  - ROAD TRAFFIC ACCIDENT [None]
